FAERS Safety Report 12596805 (Version 1)
Quarter: 2016Q3

REPORT INFORMATION
  Report Type: Spontaneous
  Country: GB (occurrence: GB)
  Receive Date: 20160727
  Receipt Date: 20160727
  Transmission Date: 20161109
  Serious: Yes (Other)
  Sender: FDA-Public Use
  Company Number: GB-APOTEX-2016AP009915

PATIENT
  Age: 41 Year
  Sex: Female

DRUGS (4)
  1. PAROXETINE. [Suspect]
     Active Substance: PAROXETINE
     Indication: PRODUCT USED FOR UNKNOWN INDICATION
     Dosage: UNK
     Route: 065
     Dates: start: 20010830
  2. PAROXETINE. [Suspect]
     Active Substance: PAROXETINE
     Indication: PRODUCT USED FOR UNKNOWN INDICATION
     Dosage: 20 MG, UNK
     Route: 065
     Dates: start: 20010921, end: 20010928
  3. DIAZEPAM. [Concomitant]
     Active Substance: DIAZEPAM
     Indication: PRODUCT USED FOR UNKNOWN INDICATION
     Dosage: UNK
     Route: 065
     Dates: start: 20010921
  4. EFFEXOR [Concomitant]
     Active Substance: VENLAFAXINE HYDROCHLORIDE
     Indication: PRODUCT USED FOR UNKNOWN INDICATION
     Dosage: UNK
     Route: 065
     Dates: start: 20011102

REACTIONS (22)
  - Withdrawal syndrome [Unknown]
  - Disturbance in attention [Unknown]
  - Tremor [Unknown]
  - Loss of consciousness [Unknown]
  - Mood swings [Unknown]
  - Hyperacusis [Unknown]
  - Parosmia [Unknown]
  - Depressed mood [Unknown]
  - Anxiety [Unknown]
  - Suicidal ideation [Unknown]
  - Paraesthesia [Unknown]
  - Palpitations [Unknown]
  - Decreased appetite [Unknown]
  - Intentional self-injury [Unknown]
  - Hypoaesthesia [Unknown]
  - Panic attack [Unknown]
  - Syncope [Unknown]
  - Malaise [Unknown]
  - Depression [Unknown]
  - Terminal insomnia [Unknown]
  - Amnesia [Unknown]
  - Insomnia [Unknown]

NARRATIVE: CASE EVENT DATE: 20011102
